FAERS Safety Report 6788332-3 (Version None)
Quarter: 2010Q2

REPORT INFORMATION
  Report Type: 
  Country: None (occurrence: None)
  Receive Date: 20100623
  Receipt Date: 20080312
  Transmission Date: 20101027
  Serious: No
  Sender: FDA-Public Use
  Company Number: US-PFIZER INC-2008011339

PATIENT
  Sex: Female
  Weight: 58.181 kg

DRUGS (2)
  1. XALATAN [Suspect]
     Indication: INTRAOCULAR PRESSURE INCREASED
  2. ALL OTHER THERAPEUTIC PRODUCTS [Concomitant]

REACTIONS (7)
  - ARTHRALGIA [None]
  - EXPIRED DRUG ADMINISTERED [None]
  - HEADACHE [None]
  - INCORRECT STORAGE OF DRUG [None]
  - MEDICATION ERROR [None]
  - MYALGIA [None]
  - POOR QUALITY SLEEP [None]
